FAERS Safety Report 4388961-0 (Version None)
Quarter: 2004Q2

REPORT INFORMATION
  Report Type: 
  Country: None (occurrence: None)
  Receive Date: 20040628
  Receipt Date: 20040618
  Transmission Date: 20050107
  Serious: Yes (Other)
  Sender: FDA-Public Use
  Company Number: HQWYE540021JUN04

PATIENT
  Age: 38 Year
  Sex: Female
  Weight: 90.8 kg

DRUGS (1)
  1. EFFEXOR XR [Suspect]
     Indication: MAJOR DEPRESSION
     Dosage: 150 MG 1X PER 1 DAY, ORAL
     Route: 048

REACTIONS (2)
  - DRUG INTERACTION [None]
  - SEROTONIN SYNDROME [None]
